FAERS Safety Report 8214091-3 (Version None)
Quarter: 2012Q1

REPORT INFORMATION
  Report Type: 
  Country: None (occurrence: None)
  Receive Date: 20120314
  Receipt Date: 20120314
  Transmission Date: 20120608
  Serious: Yes (Hospitalization)
  Sender: FDA-Public Use
  Company Number: None

PATIENT
  Sex: Male
  Weight: 102.5 kg

DRUGS (6)
  1. DOXORUBICIN HCL [Suspect]
     Dosage: 32.8 MG
  2. ETOPOSIDE [Suspect]
     Dosage: 164 MG
  3. VINCRISTINE SULFATE [Suspect]
     Dosage: .912 MG
  4. CYCLOPHOSPHAMIDE [Suspect]
     Dosage: 2462 MG
  5. RITUXIMAB (MOAB C2B8 ANTI CD20, CHIMERIC) [Suspect]
     Dosage: 855 MG
  6. PREDNISONE TAB [Suspect]
     Dosage: 1360 MG

REACTIONS (4)
  - COUGH [None]
  - ANAEMIA [None]
  - LOBAR PNEUMONIA [None]
  - OROPHARYNGEAL PAIN [None]
